FAERS Safety Report 17304894 (Version 9)
Quarter: 2022Q2

REPORT INFORMATION
  Report Type: Spontaneous
  Country: US (occurrence: US)
  Receive Date: 20200123
  Receipt Date: 20220503
  Transmission Date: 20220721
  Serious: No
  Sender: FDA-Public Use
  Company Number: US-PFIZER INC-2020032073

PATIENT
  Age: 47 Year
  Sex: Female
  Weight: 76.19 kg

DRUGS (6)
  1. LYRICA [Suspect]
     Active Substance: PREGABALIN
     Indication: Seizure
     Dosage: 525 MG, DAILY (STRENGTH: 75 MG, 3 IN THE MORNING, 4 AT NIGHT/ 3 PO (PER ORAL) AM, 4 PO (PER ORAL))
     Route: 048
  2. LYRICA [Suspect]
     Active Substance: PREGABALIN
     Indication: Cyst
  3. LYRICA [Suspect]
     Active Substance: PREGABALIN
     Indication: Seizure
  4. LYRICA [Suspect]
     Active Substance: PREGABALIN
     Indication: Partial seizures
  5. VITAMIN B12 [Concomitant]
     Active Substance: CYANOCOBALAMIN
     Indication: Vitamin B12 decreased
     Dosage: UNK UNK, MONTHLY
  6. DILANTIN [Concomitant]
     Active Substance: PHENYTOIN
     Dosage: 300 MG, 1X/DAY (AT NIGHT)
     Dates: start: 1995

REACTIONS (3)
  - Anxiety [Unknown]
  - Confusional state [Not Recovered/Not Resolved]
  - Balance disorder [Unknown]
